FAERS Safety Report 11715435 (Version 2)
Quarter: 2018Q1

REPORT INFORMATION
  Report Type: Report from Study
  Country: US (occurrence: US)
  Receive Date: 20151109
  Receipt Date: 20180322
  Transmission Date: 20180508
  Serious: Yes (Hospitalization)
  Sender: FDA-Public Use
  Company Number: PHHO2015US018761

PATIENT
  Age: 35 Year
  Sex: Male
  Weight: 101.13 kg

DRUGS (4)
  1. COSENTYX [Suspect]
     Active Substance: SECUKINUMAB
     Indication: PSORIATIC ARTHROPATHY
     Dosage: 150 MG, UNK
     Route: 058
     Dates: start: 20131014, end: 20151014
  2. IBUPROFAN [Concomitant]
     Indication: PSORIATIC ARTHROPATHY
     Dosage: 800 MG, PRN
     Route: 048
     Dates: start: 20140922
  3. HYDROCODONE [Concomitant]
     Active Substance: HYDROCODONE
     Indication: PSORIATIC ARTHROPATHY
     Dosage: 10/325 MG, PRN
     Route: 048
     Dates: start: 2010
  4. CYCLOBENZAPRINE. [Concomitant]
     Active Substance: CYCLOBENZAPRINE
     Indication: NECK PAIN
     Dosage: 10 MG, QD
     Route: 048
     Dates: start: 20141013

REACTIONS (1)
  - Periorbital abscess [Recovered/Resolved]

NARRATIVE: CASE EVENT DATE: 20151019
